FAERS Safety Report 13472574 (Version 1)
Quarter: 2017Q2

REPORT INFORMATION
  Report Type: Spontaneous
  Country: US (occurrence: US)
  Receive Date: 20170423
  Receipt Date: 20170423
  Transmission Date: 20170830
  Serious: Yes (Disabling, Other)
  Sender: FDA-Public Use
  Company Number: None

PATIENT
  Age: 48 Year
  Sex: Male
  Weight: 66.15 kg

DRUGS (4)
  1. LISINOPRIL HTZ [Concomitant]
  2. AMLODOPINE [Concomitant]
     Active Substance: AMLODIPINE BESYLATE
  3. TAMIFLU [Suspect]
     Active Substance: OSELTAMIVIR PHOSPHATE
     Indication: INFLUENZA
     Dosage: ?          QUANTITY:1 CAPSULE(S);?
     Route: 048
     Dates: start: 20170412, end: 20170416
  4. ADVIL [Concomitant]
     Active Substance: IBUPROFEN

REACTIONS (7)
  - Dysgeusia [None]
  - Nausea [None]
  - Decreased appetite [None]
  - Hyperhidrosis [None]
  - Abdominal pain [None]
  - Confusional state [None]
  - Asthenia [None]

NARRATIVE: CASE EVENT DATE: 20170418
